FAERS Safety Report 15082904 (Version 1)
Quarter: 2018Q2

REPORT INFORMATION
  Report Type: Spontaneous
  Country: US (occurrence: US)
  Receive Date: 20180628
  Receipt Date: 20180628
  Transmission Date: 20180711
  Serious: Yes (Hospitalization)
  Sender: FDA-Public Use
  Company Number: US-JNJFOC-20180632074

PATIENT
  Age: 59 Year
  Sex: Male

DRUGS (1)
  1. INVOKANA [Suspect]
     Active Substance: CANAGLIFLOZIN
     Indication: TYPE 2 DIABETES MELLITUS
     Route: 048
     Dates: start: 20161201

REACTIONS (4)
  - Toe amputation [Unknown]
  - Diabetic foot [Unknown]
  - Osteomyelitis [Unknown]
  - Gangrene [Unknown]

NARRATIVE: CASE EVENT DATE: 20180202
